FAERS Safety Report 21126742 (Version 1)
Quarter: 2022Q3

REPORT INFORMATION
  Report Type: Spontaneous
  Country: FR (occurrence: FR)
  Receive Date: 20220725
  Receipt Date: 20220725
  Transmission Date: 20221026
  Serious: Yes (Other)
  Sender: FDA-Public Use
  Company Number: None

PATIENT
  Age: 57 Year
  Sex: Male

DRUGS (5)
  1. TEGRETOL [Suspect]
     Active Substance: CARBAMAZEPINE
     Indication: Epilepsy
     Dosage: 800 MG, QD (2-0-0)
     Route: 048
     Dates: start: 20220707, end: 20220707
  2. ZONEGRAN [Suspect]
     Active Substance: ZONISAMIDE
     Indication: Epilepsy
     Dosage: 100 MG (2-0-0)
     Route: 048
     Dates: start: 20220707, end: 20220707
  3. ZONEGRAN [Suspect]
     Active Substance: ZONISAMIDE
     Indication: Epilepsy
     Dosage: 200 MG, QD (2-0-0)
     Route: 048
     Dates: start: 20220707, end: 20220707
  4. CLOBAZAM [Suspect]
     Active Substance: CLOBAZAM
     Indication: Epilepsy
     Dosage: 10 MG, QD (1-0-0)
     Route: 048
     Dates: start: 20220707, end: 20220707
  5. VALPROATE SODIUM [Suspect]
     Active Substance: VALPROATE SODIUM
     Indication: Epilepsy
     Dosage: 1 G, QD (2-0-0) (FORMULATION:EXTENDED-RELEASE FILM-COATED TABLET)
     Route: 048
     Dates: start: 20220707, end: 20220707

REACTIONS (4)
  - Vertigo [Recovered/Resolved]
  - Body temperature decreased [Recovered/Resolved]
  - Somnolence [Recovered/Resolved]
  - Product dispensing error [Recovered/Resolved]

NARRATIVE: CASE EVENT DATE: 20220707
